FAERS Safety Report 7933937-7 (Version None)
Quarter: 2011Q4

REPORT INFORMATION
  Report Type: 
  Country: None (occurrence: None)
  Receive Date: 20111122
  Receipt Date: 20111115
  Transmission Date: 20120403
  Serious: No
  Sender: FDA-Public Use
  Company Number: US-JNJFOC-20111106437

PATIENT
  Sex: Female
  Weight: 122 kg

DRUGS (2)
  1. DURAGESIC-100 [Suspect]
     Indication: POST POLIO SYNDROME
     Route: 062
     Dates: start: 20060101
  2. UNKNOWN MEDICATION [Concomitant]
     Indication: POST POLIO SYNDROME
     Route: 065

REACTIONS (1)
  - DRUG DOSE OMISSION [None]
